FAERS Safety Report 7386290-4 (Version None)
Quarter: 2011Q1

REPORT INFORMATION
  Report Type: 
  Country: None (occurrence: None)
  Receive Date: 20110331
  Receipt Date: 20110314
  Transmission Date: 20110831
  Serious: Yes (Death, Other)
  Sender: FDA-Public Use
  Company Number: US-SANOFI-AVENTIS-2011SA017966

PATIENT

DRUGS (4)
  1. BEVACIZUMAB [Suspect]
     Route: 042
  2. CETUXIMAB [Suspect]
     Route: 042
  3. OXALIPLATIN [Suspect]
     Route: 042
  4. CAPECITABINE [Suspect]
     Route: 048

REACTIONS (31)
  - DISEASE PROGRESSION [None]
  - PALMAR-PLANTAR ERYTHRODYSAESTHESIA SYNDROME [None]
  - COLORECTAL CANCER METASTATIC [None]
  - HYPERTENSION [None]
  - URETHRAL OBSTRUCTION [None]
  - INTESTINAL PERFORATION [None]
  - VOMITING [None]
  - THROMBOCYTOPENIA [None]
  - CEREBROVASCULAR ACCIDENT [None]
  - ASPARTATE AMINOTRANSFERASE INCREASED [None]
  - FATIGUE [None]
  - PERIPHERAL SENSORY NEUROPATHY [None]
  - NEUTROPENIA [None]
  - DEEP VEIN THROMBOSIS [None]
  - PULMONARY EMBOLISM [None]
  - NEOPLASM MALIGNANT [None]
  - DEHYDRATION [None]
  - ALANINE AMINOTRANSFERASE INCREASED [None]
  - DIARRHOEA [None]
  - HYPERSENSITIVITY [None]
  - PARONYCHIA [None]
  - RASH [None]
  - ANAEMIA [None]
  - HYPOMAGNESAEMIA [None]
  - EMBOLISM ARTERIAL [None]
  - INTESTINAL OBSTRUCTION [None]
  - SEPSIS [None]
  - EMBOLISM VENOUS [None]
  - PROTEINURIA [None]
  - DYSPNOEA [None]
  - HYPERBILIRUBINAEMIA [None]
